FAERS Safety Report 4285911-2 (Version None)
Quarter: 2004Q1

REPORT INFORMATION
  Report Type: 
  Country: None (occurrence: None)
  Receive Date: 20040205
  Receipt Date: 20040129
  Transmission Date: 20041129
  Serious: Yes (Congenital Anomaly)
  Sender: FDA-Public Use
  Company Number: US-GLAXOSMITHKLINE-A0496297A

PATIENT
  Sex: Male
  Weight: 2.1 kg

DRUGS (3)
  1. RETROVIR [Suspect]
     Indication: HIV INFECTION
     Dosage: 600MG PER DAY
     Dates: start: 20021030
  2. TENOFOVIR [Concomitant]
     Indication: HIV INFECTION
     Dosage: 300MG PER DAY
     Dates: start: 20021127
  3. NEVIRAPINE [Concomitant]
     Indication: HIV INFECTION
     Dosage: 400MG PER DAY
     Dates: start: 20030611

REACTIONS (2)
  - DRUG EXPOSURE DURING PREGNANCY [None]
  - EPIDERMOLYSIS BULLOSA [None]
